FAERS Safety Report 10842179 (Version 2)
Quarter: 2015Q1

REPORT INFORMATION
  Report Type: Report from Study
  Country: AU (occurrence: AU)
  Receive Date: 20150220
  Receipt Date: 20150303
  Transmission Date: 20150721
  Serious: Yes (Other)
  Sender: FDA-Public Use
  Company Number: PHHY2015AU017257

PATIENT
  Age: 45 Year
  Sex: Male

DRUGS (1)
  1. CLOZARIL [Suspect]
     Active Substance: CLOZAPINE
     Indication: SCHIZOPHRENIA
     Dosage: 25 MG
     Route: 048
     Dates: start: 20150204

REACTIONS (5)
  - Left ventricular dysfunction [Not Recovered/Not Resolved]
  - Pyrexia [Unknown]
  - Diastolic dysfunction [Not Recovered/Not Resolved]
  - Myocarditis [Unknown]
  - Confusional state [Unknown]

NARRATIVE: CASE EVENT DATE: 20150205
